FAERS Safety Report 8803348 (Version 1)
Quarter: 2012Q4

REPORT INFORMATION
  Report Type: 
  Country: US (occurrence: US)
  Receive Date: 20120924
  Receipt Date: 20120924
  Transmission Date: 20130627
  Serious: Yes (Death, Hospitalization, Other)
  Sender: FDA-Public Use
  Company Number: US-ASTRAZENECA-2012SE72899

PATIENT
  Age: 50 Year
  Sex: Male

DRUGS (3)
  1. SEROQUEL [Suspect]
     Indication: ABNORMAL BEHAVIOUR
     Route: 048
     Dates: end: 20110611
  2. DEPAKOTE [Concomitant]
     Indication: ABNORMAL BEHAVIOUR
  3. BLOOD PRESURE MEDICATIONS [Concomitant]

REACTIONS (8)
  - Death [Fatal]
  - Blood disorder [Unknown]
  - Abasia [Unknown]
  - Pyrexia [Unknown]
  - Platelet count decreased [Unknown]
  - Hypertension [Unknown]
  - Adverse event [Unknown]
  - Off label use [Unknown]
